FAERS Safety Report 16491519 (Version 1)
Quarter: 2019Q3

REPORT INFORMATION
  Report Type: Spontaneous
  Country: US (occurrence: US)
  Receive Date: 20190627
  Receipt Date: 20190627
  Transmission Date: 20191004
  Serious: Yes (Disabling)
  Sender: FDA-Public Use
  Company Number: None

PATIENT
  Age: 57 Year
  Sex: Female
  Weight: 58.5 kg

DRUGS (8)
  1. INTERNAL LOOP RECORDER [Concomitant]
  2. BUPROPION XL 300MG [Suspect]
     Active Substance: BUPROPION
     Indication: ANXIETY
     Dosage: ?          QUANTITY:1 TABLET(S);?
     Route: 048
     Dates: start: 20190621, end: 20190627
  3. PROGESTERONE. [Concomitant]
     Active Substance: PROGESTERONE
  4. GINGKO BILIBA [Concomitant]
  5. FISH OIL [Concomitant]
     Active Substance: FISH OIL
  6. ALPRAZOLAM. [Concomitant]
     Active Substance: ALPRAZOLAM
  7. VITAMIN C, B12, [Concomitant]
  8. CALCIUM, MAGNESIUM [Concomitant]

REACTIONS (6)
  - Fatigue [None]
  - Headache [None]
  - Tinnitus [None]
  - Gait inability [None]
  - Vertigo [None]
  - Product substitution issue [None]

NARRATIVE: CASE EVENT DATE: 20190627
